FAERS Safety Report 8905944 (Version 1)
Quarter: 2012Q4

REPORT INFORMATION
  Report Type: 
  Country: IN (occurrence: IN)
  Receive Date: 20121109
  Receipt Date: 20121109
  Transmission Date: 20130627
  Serious: Yes (Death)
  Sender: FDA-Public Use
  Company Number: IN-GLAXOSMITHKLINE-A0856720A

PATIENT
  Sex: Male

DRUGS (2)
  1. WELLBUTRIN XL [Suspect]
     Indication: STRESS
     Dosage: 300MG Unknown
     Route: 048
     Dates: start: 20090519, end: 20090528
  2. AMBIEN CR [Concomitant]
     Indication: SLEEP DISORDER

REACTIONS (11)
  - Completed suicide [Fatal]
  - Cardio-respiratory arrest [Unknown]
  - Head injury [Unknown]
  - Multiple injuries [Unknown]
  - Depression [Unknown]
  - Abnormal behaviour [Unknown]
  - Feeling of despair [Unknown]
  - Condition aggravated [Unknown]
  - Social avoidant behaviour [Unknown]
  - Confusional state [Unknown]
  - Thinking abnormal [Unknown]
